FAERS Safety Report 6121785-2 (Version None)
Quarter: 2009Q1

REPORT INFORMATION
  Report Type: 
  Country: None (occurrence: None)
  Receive Date: 20090317
  Receipt Date: 20090309
  Transmission Date: 20090719
  Serious: Yes (Hospitalization)
  Sender: FDA-Public Use
  Company Number: IN-B.I. PHARMACEUTICALS,INC./RIDGEFIELD-2009-DE-02150GD

PATIENT
  Age: 80 Year
  Sex: Male

DRUGS (13)
  1. MORPHINE SULFATE [Suspect]
     Indication: PAIN
     Dosage: 30MG
     Route: 048
  2. MORPHINE SULFATE [Suspect]
     Indication: BREAKTHROUGH PAIN
     Dosage: 90MG
     Route: 048
  3. MORPHINE SULFATE [Suspect]
     Dosage: 120MG
     Route: 048
  4. MORPHINE SULFATE [Suspect]
     Dosage: 180MG
     Route: 048
  5. MORPHINE SULFATE [Suspect]
     Dosage: 10MG
     Route: 048
  6. PARACETAMOL [Suspect]
     Indication: PAIN
     Dosage: 1125MG
  7. PARACETAMOL [Suspect]
     Dosage: 1500MG
  8. IBUPROFEN TABLETS [Suspect]
     Indication: PAIN
     Dosage: 1200MG
  9. RANITIDINE [Suspect]
     Dosage: 300MG
  10. TRAMADOL HCL [Suspect]
     Indication: PAIN
     Dosage: 150MG
  11. AMITRIPTYLINE HCL [Suspect]
     Indication: PAIN
     Dosage: 25MG
  12. AMITRIPTYLINE HCL [Suspect]
     Dosage: 50MG
  13. BISACODYL [Concomitant]

REACTIONS (6)
  - DRUG INEFFECTIVE [None]
  - DRUG INTERACTION [None]
  - OVERDOSE [None]
  - RESPIRATORY DEPRESSION [None]
  - SEDATION [None]
  - UNRESPONSIVE TO STIMULI [None]
